FAERS Safety Report 4280026-1 (Version None)
Quarter: 2004Q1

REPORT INFORMATION
  Report Type: 
  Country: None (occurrence: None)
  Receive Date: 20040128
  Receipt Date: 20040116
  Transmission Date: 20041129
  Serious: Yes (Hospitalization)
  Sender: FDA-Public Use
  Company Number: PHBS2004DE00977

PATIENT
  Sex: Female
  Weight: 2 kg

DRUGS (1)
  1. VALSARTAN + HYDROCHLOROTHIAZIDE [Suspect]
     Route: 064

REACTIONS (9)
  - CRANIAL SUTURES WIDENING [None]
  - DIALYSIS [None]
  - DRUG EXPOSURE DURING PREGNANCY [None]
  - JOINT CONTRACTURE [None]
  - KIDNEY MALFORMATION [None]
  - NEONATAL ANURIA [None]
  - NEPHROGENIC ANAEMIA [None]
  - OLIGOHYDRAMNIOS [None]
  - RENAL FAILURE [None]
